FAERS Safety Report 5010207-0 (Version None)
Quarter: 2006Q2

REPORT INFORMATION
  Report Type: 
  Country: None (occurrence: None)
  Receive Date: 20060404
  Receipt Date: 20051215
  Transmission Date: 20061013
  Serious: No
  Sender: FDA-Public Use
  Company Number: US200512002709

PATIENT
  Age: 62 Year
  Sex: Female

DRUGS (9)
  1. CYMBALTA [Suspect]
     Indication: NEUROPATHY
     Dosage: 20 MG, ORAL
     Route: 048
     Dates: start: 20050101
  2. PREMPRO [Concomitant]
  3. ACIPHEX [Concomitant]
  4. NEURONTIN [Concomitant]
  5. LORAZEPAM [Concomitant]
  6. ZYRTEC [Concomitant]
  7. RHINOCORT [Concomitant]
  8. ASTELIN [Concomitant]
  9. PULMICORT [Concomitant]

REACTIONS (1)
  - NEUROPATHY [None]
